FAERS Safety Report 12979473 (Version 2)
Quarter: 2016Q4

REPORT INFORMATION
  Report Type: Spontaneous
  Country: GB (occurrence: GB)
  Receive Date: 20161128
  Receipt Date: 20161212
  Transmission Date: 20170207
  Serious: Yes (Other)
  Sender: FDA-Public Use
  Company Number: GB-PFIZER INC-2016544886

PATIENT
  Age: 83 Year
  Sex: Female
  Weight: 95 kg

DRUGS (13)
  1. DIGOXIN. [Concomitant]
     Active Substance: DIGOXIN
     Dosage: 1 DF, 1X/DAY
     Dates: start: 20151014
  2. EPLERENONE. [Suspect]
     Active Substance: EPLERENONE
     Dosage: UNK
     Dates: start: 20161025
  3. ASPIRIN. [Concomitant]
     Active Substance: ASPIRIN
     Dosage: 1 DF, 1X/DAY
     Dates: start: 20151014
  4. OMEPRAZOLE. [Concomitant]
     Active Substance: OMEPRAZOLE
     Dosage: 1 DF, 1X/DAY
     Dates: start: 20160809
  5. ATORVASTATIN [Concomitant]
     Active Substance: ATORVASTATIN
     Dosage: 1 DF, 1X/DAY
     Dates: start: 20160115
  6. BISOPROLOL [Concomitant]
     Active Substance: BISOPROLOL
     Dosage: 1 DF, 1X/DAY
     Dates: start: 20160809
  7. FUROSEMIDE. [Concomitant]
     Active Substance: FUROSEMIDE
     Dosage: 2 IN THE MORNING AND 1 LUNCHTIME IF NEED BE.
     Dates: start: 20160809
  8. WARFARIN SODIUM. [Concomitant]
     Active Substance: WARFARIN SODIUM
     Dosage: AS DIRECTED BY ANTICOAGULATION CLINIC.
     Dates: start: 20120705
  9. BETAMETHASONE VALERATE. [Concomitant]
     Active Substance: BETAMETHASONE VALERATE
     Dosage: 1 DF, 2X/DAY
     Dates: start: 20161111
  10. DIPROBASE [Concomitant]
     Active Substance: CHLOROCRESOL
     Dosage: APPLY AS NEEDED.
     Dates: start: 20110419
  11. ISOSORBIDE MONONITRATE. [Concomitant]
     Active Substance: ISOSORBIDE MONONITRATE
     Dosage: 1 TABLET TWICE DAILY AT 8AM AND 2PM.
     Dates: start: 20160809
  12. DOXAZOSIN [Concomitant]
     Active Substance: DOXAZOSIN\DOXAZOSIN MESYLATE
     Dosage: 1 DF, 1X/DAY
     Dates: start: 20160809
  13. LOSARTAN. [Concomitant]
     Active Substance: LOSARTAN
     Dosage: 1 DF, 1X/DAY
     Dates: start: 20160809

REACTIONS (2)
  - Rash pruritic [Recovered/Resolved]
  - Malaise [Recovered/Resolved]

NARRATIVE: CASE EVENT DATE: 20161111
